FAERS Safety Report 4590239-7 (Version None)
Quarter: 2005Q1

REPORT INFORMATION
  Report Type: 
  Country: None (occurrence: None)
  Receive Date: 20050224
  Receipt Date: 20050214
  Transmission Date: 20050727
  Serious: Yes (Hospitalization)
  Sender: FDA-Public Use
  Company Number: 200511184US

PATIENT
  Age: 85 Year
  Sex: Female

DRUGS (1)
  1. AMARYL [Suspect]
     Indication: BLOOD GLUCOSE INCREASED
     Route: 048

REACTIONS (1)
  - BLOOD GLUCOSE DECREASED [None]
